FAERS Safety Report 6804144-6 (Version None)
Quarter: 2010Q2

REPORT INFORMATION
  Report Type: 
  Country: None (occurrence: None)
  Receive Date: 20100628
  Receipt Date: 20071228
  Transmission Date: 20101027
  Serious: Yes (Hospitalization, Other)
  Sender: FDA-Public Use
  Company Number: US-PFIZER INC-2006015251

PATIENT
  Sex: Female
  Weight: 56.7 kg

DRUGS (8)
  1. NIFEDIPINE [Suspect]
     Indication: CHEST PAIN
     Route: 065
  2. NIFEDIPINE [Suspect]
     Indication: CARDIAC DISORDER
  3. PROCARDIA XL [Suspect]
     Indication: CHEST PAIN
     Dosage: QD: EVERY DAY
     Route: 065
  4. PROCARDIA XL [Suspect]
     Indication: CARDIAC DISORDER
  5. PROCARDIA XL [Suspect]
     Indication: HYPERTENSION
  6. LIPITOR [Suspect]
     Indication: BLOOD CHOLESTEROL INCREASED
     Dosage: DAILY: EVERY DAY
     Route: 048
  7. CALCIUM [Suspect]
  8. PRILOSEC [Concomitant]

REACTIONS (6)
  - ABDOMINAL PAIN UPPER [None]
  - BLOOD PRESSURE INADEQUATELY CONTROLLED [None]
  - CHEST PAIN [None]
  - DIZZINESS [None]
  - TREMOR [None]
  - VISION BLURRED [None]
